FAERS Safety Report 24228953 (Version 2)
Quarter: 2024Q3

REPORT INFORMATION
  Report Type: Report from Study
  Country: EG (occurrence: EG)
  Receive Date: 20240820
  Receipt Date: 20240829
  Transmission Date: 20241016
  Serious: Yes (Other)
  Sender: NOVARTIS
  Company Number: EG-002147023-NVSC2024EG167412

PATIENT
  Age: 38 Year
  Sex: Female
  Weight: 85 kg

DRUGS (12)
  1. COSENTYX [Suspect]
     Active Substance: SECUKINUMAB
     Indication: Ankylosing spondylitis
     Dosage: 150 MG, FOR 5 WEEKS AS LOADING DOSE THEN ONE PEN OF  COSENTYX  150 MG EVERY MONTH AS MAINTENANCE DOS
     Route: 058
     Dates: start: 202304, end: 202401
  2. COSENTYX [Suspect]
     Active Substance: SECUKINUMAB
     Indication: Fibromyalgia
  3. COSENTYX [Suspect]
     Active Substance: SECUKINUMAB
     Indication: Sacroiliitis
  4. CYMBALTA [Concomitant]
     Active Substance: DULOXETINE HYDROCHLORIDE
     Indication: Ankylosing spondylitis
     Dosage: 30 MG, QD
     Route: 065
     Dates: start: 2010
  5. CYMBALTA [Concomitant]
     Active Substance: DULOXETINE HYDROCHLORIDE
     Indication: Sacroiliitis
  6. CYMBALTA [Concomitant]
     Active Substance: DULOXETINE HYDROCHLORIDE
     Indication: Fibromyalgia
  7. .ALPHA.-LIPOIC ACID [Concomitant]
     Active Substance: .ALPHA.-LIPOIC ACID
     Indication: Ankylosing spondylitis
     Dosage: 600 MG, QD
     Route: 048
     Dates: start: 2010
  8. .ALPHA.-LIPOIC ACID [Concomitant]
     Active Substance: .ALPHA.-LIPOIC ACID
     Indication: Fibromyalgia
  9. .ALPHA.-LIPOIC ACID [Concomitant]
     Active Substance: .ALPHA.-LIPOIC ACID
     Indication: Sacroiliitis
  10. SULPIRIDE [Concomitant]
     Active Substance: SULPIRIDE
     Indication: Product used for unknown indication
     Dosage: 50 MG, QD
     Route: 048
     Dates: start: 2010
  11. TOPAMAX [Concomitant]
     Active Substance: TOPIRAMATE
     Indication: Eating disorder
     Dosage: UNK, QD
     Route: 048
     Dates: start: 2010
  12. METHOTREXATE [Concomitant]
     Active Substance: METHOTREXATE
     Indication: Rheumatic disorder
     Dosage: 0.75 ML, QW
     Route: 030
     Dates: start: 2013, end: 2023

REACTIONS (9)
  - Condition aggravated [Not Recovered/Not Resolved]
  - Arthralgia [Unknown]
  - Dysstasia [Unknown]
  - Motor dysfunction [Unknown]
  - Product use in unapproved indication [Recovered/Resolved]
  - Drug ineffective [Recovered/Resolved]
  - Neuritis [Not Recovered/Not Resolved]
  - Movement disorder [Unknown]
  - Pain [Unknown]

NARRATIVE: CASE EVENT DATE: 20230401
